FAERS Safety Report 7283744-6 (Version None)
Quarter: 2011Q1

REPORT INFORMATION
  Report Type: 
  Country: None (occurrence: None)
  Receive Date: 20110126
  Receipt Date: 20110110
  Transmission Date: 20110831
  Serious: Yes (Death)
  Sender: FDA-Public Use
  Company Number: B0694921A

PATIENT
  Age: 48 Year
  Sex: Female

DRUGS (3)
  1. ETHANOL (FORMULATION UNKNOWN) (ALCOHOL) [Suspect]
  2. HYDROXYZINE [Suspect]
     Dosage: ORAL
     Route: 048
  3. BUPROPION HYDROCHLORIDE [Suspect]
     Dosage: ORAL
     Route: 048

REACTIONS (2)
  - COMPLETED SUICIDE [None]
  - OVERDOSE [None]
